FAERS Safety Report 25828999 (Version 2)
Quarter: 2025Q4

REPORT INFORMATION
  Report Type: Spontaneous
  Country: US (occurrence: US)
  Receive Date: 20250922
  Receipt Date: 20251027
  Transmission Date: 20260118
  Serious: No
  Sender: SANOFI AVENTIS
  Company Number: US-SA-2025SA281167

PATIENT
  Age: 68 Year
  Sex: Male

DRUGS (6)
  1. DUPIXENT [Suspect]
     Active Substance: DUPILUMAB
     Indication: Asthma
     Dosage: 300 MG, QOW
     Route: 058
     Dates: start: 202503
  2. MONTELUKAST [Concomitant]
     Active Substance: MONTELUKAST
     Dosage: UNK
  3. .ALPHA.-TOCOPHEROL [Concomitant]
     Active Substance: .ALPHA.-TOCOPHEROL
  4. CLOBETASOL [Concomitant]
     Active Substance: CLOBETASOL
  5. CLOTRIMAZOLE AND BETAMETHASONE DIPROPIONATE [Concomitant]
     Active Substance: BETAMETHASONE\BETAMETHASONE DIPROPIONATE\CLOTRIMAZOLE
  6. MUPIROCIN [Concomitant]
     Active Substance: MUPIROCIN

REACTIONS (5)
  - Dry skin [Unknown]
  - Pruritus [Unknown]
  - Urticaria [Unknown]
  - Rash [Unknown]
  - Injection site swelling [Unknown]

NARRATIVE: CASE EVENT DATE: 20250101
